FAERS Safety Report 7935457-2 (Version None)
Quarter: 2011Q4

REPORT INFORMATION
  Report Type: 
  Country: None (occurrence: None)
  Receive Date: 20111122
  Receipt Date: 20111116
  Transmission Date: 20120403
  Serious: Yes (Hospitalization)
  Sender: FDA-Public Use
  Company Number: US-BRISTOL-MYERS SQUIBB COMPANY-14316194

PATIENT
  Age: 52 Year
  Sex: Male

DRUGS (4)
  1. TRILEPTAL [Concomitant]
     Dates: start: 20080508
  2. IPILIMUMAB [Suspect]
     Indication: METASTATIC MALIGNANT MELANOMA
     Dosage: DRUG INTERRUPTED ON 19AUG2008
     Route: 042
     Dates: start: 20080624
  3. CELEBREX [Concomitant]
     Dates: start: 20080617
  4. OXYCONTIN [Concomitant]
     Dates: start: 20080508

REACTIONS (1)
  - THYROIDITIS [None]
